FAERS Safety Report 9437412 (Version 2)
Quarter: 2013Q3

REPORT INFORMATION
  Report Type: Spontaneous
  Country: US (occurrence: US)
  Receive Date: 20130802
  Receipt Date: 20130907
  Transmission Date: 20140515
  Serious: No
  Sender: FDA-Public Use
  Company Number: US-B.I. PHARMACEUTICALS,INC./RIDGEFIELD-2013-BI-22350BP

PATIENT
  Age: 58 Year
  Sex: Female

DRUGS (3)
  1. SPIRIVA [Suspect]
     Indication: CHRONIC OBSTRUCTIVE PULMONARY DISEASE
     Dosage: 18 MCG
     Route: 055
     Dates: start: 200512
  2. ADVAIR [Concomitant]
     Indication: ASTHMA
     Dosage: STRENGTH: 500/50 MG; DAILY DOSE: 1000/100 MG
     Route: 055
  3. CELEXA [Concomitant]
     Indication: ANXIETY
     Dosage: STRENGTH: 20 MG; DAILY DOSE: 20 MG
     Route: 048

REACTIONS (2)
  - Dysphonia [Recovered/Resolved]
  - Dyspnoea [Recovered/Resolved]
